FAERS Safety Report 4802282-0 (Version None)
Quarter: 2005Q4

REPORT INFORMATION
  Report Type: 
  Country: None (occurrence: None)
  Receive Date: 20051012
  Receipt Date: 20050929
  Transmission Date: 20060501
  Serious: Yes (Other)
  Sender: FDA-Public Use
  Company Number: 2005033133

PATIENT
  Age: 56 Year
  Sex: Female
  Weight: 67.1324 kg

DRUGS (2)
  1. CLEOCIN [Suspect]
     Indication: TOOTH INFECTION
     Dosage: 600 MG (75 MG, 2 UNIT DOSE QID INTERVAL:  EVERY DAY), ORAL
     Route: 048
     Dates: start: 20050209, end: 20050214
  2. CLEOCIN [Suspect]
     Indication: TOOTH INFECTION
     Dosage: 600 MG (75 MG, 2 UNIT DOSE QID INTERVAL:  EVERY DAY), ORAL
     Route: 048
     Dates: start: 20050103

REACTIONS (10)
  - ABDOMINAL PAIN UPPER [None]
  - ANOREXIA [None]
  - ASTHENIA [None]
  - CLOSTRIDIUM COLITIS [None]
  - DRY MOUTH [None]
  - HAEMATOCHEZIA [None]
  - NAUSEA [None]
  - PALPITATIONS [None]
  - PHARMACEUTICAL PRODUCT COMPLAINT [None]
  - SYNCOPE [None]
